FAERS Safety Report 6016633-5 (Version None)
Quarter: 2008Q4

REPORT INFORMATION
  Report Type: 
  Country: None (occurrence: None)
  Receive Date: 20081222
  Receipt Date: 20081216
  Transmission Date: 20090506
  Serious: Yes (Other)
  Sender: FDA-Public Use
  Company Number: PHHY2008AT32288

PATIENT

DRUGS (3)
  1. CERTICAN [Suspect]
     Indication: RENAL TRANSPLANT
  2. CYCLOSPORINE [Suspect]
     Indication: RENAL TRANSPLANT
     Route: 065
  3. CYCLOSPORINE [Suspect]
     Route: 065

REACTIONS (3)
  - HAEMOGLOBIN DECREASED [None]
  - HAEMOLYSIS [None]
  - RENAL IMPAIRMENT [None]
